FAERS Safety Report 11363604 (Version 3)
Quarter: 2017Q1

REPORT INFORMATION
  Report Type: Report from Study
  Country: VE (occurrence: VE)
  Receive Date: 20150811
  Receipt Date: 20170208
  Transmission Date: 20170428
  Serious: Yes (Hospitalization, Disabling)
  Sender: FDA-Public Use
  Company Number: PHHY2014VE144499

PATIENT
  Age: 43 Year
  Sex: Female

DRUGS (7)
  1. TASIGNA [Suspect]
     Active Substance: NILOTINIB
     Dosage: 400 MG, QD
     Route: 048
  2. TIOCOLFEN [Concomitant]
     Indication: INTERVERTEBRAL DISC PROTRUSION
     Dosage: 3 OR 4 CAPSULES OF 650
     Route: 065
  3. MIOVIT [Concomitant]
     Indication: INTERVERTEBRAL DISC PROTRUSION
     Dosage: 1 DF, QD
     Route: 065
  4. TIOCOLFEN [Concomitant]
     Indication: MIGRAINE
  5. TASIGNA [Suspect]
     Active Substance: NILOTINIB
     Indication: CHRONIC MYELOID LEUKAEMIA
     Dosage: 800 MG, QD
     Route: 048
     Dates: start: 20130529
  6. PROFENID [Concomitant]
     Active Substance: KETOPROFEN
     Indication: PAIN
     Dosage: 150 MG, QD
     Route: 065
  7. VITAMIN B COMPLEX [Concomitant]
     Active Substance: CYANOCOBALAMIN\DEXPANTHENOL\NIACINAMIDE\PYRIDOXINE HYDROCHLORIDE\RIBOFLAVIN 5^-PHOSPHATE SODIUM\THIAMINE HYDROCHLORIDE\VITAMIN B COMPLEX
     Indication: PRODUCT USED FOR UNKNOWN INDICATION
     Dosage: QD
     Route: 048

REACTIONS (17)
  - Intervertebral disc protrusion [Unknown]
  - Gene mutation identification test positive [Recovered/Resolved]
  - Oedema peripheral [Recovering/Resolving]
  - Fear [Unknown]
  - Haematology test abnormal [Recovered/Resolved]
  - Blood count abnormal [Recovered/Resolved]
  - Diarrhoea [Recovering/Resolving]
  - Chikungunya virus infection [Recovered/Resolved]
  - Platelet count abnormal [Recovered/Resolved]
  - Dizziness [Recovering/Resolving]
  - Spinal pain [Unknown]
  - Pyrexia [Recovering/Resolving]
  - Tachycardia [Recovering/Resolving]
  - Infection [Recovering/Resolving]
  - Syncope [Recovering/Resolving]
  - Anaemia [Unknown]
  - Myalgia [Recovering/Resolving]

NARRATIVE: CASE EVENT DATE: 20140801
